FAERS Safety Report 9110112 (Version 1)
Quarter: 2013Q1

REPORT INFORMATION
  Report Type: Spontaneous
  Country: US (occurrence: US)
  Receive Date: 20130222
  Receipt Date: 20130222
  Transmission Date: 20140127
  Serious: Yes (Hospitalization)
  Sender: FDA-Public Use
  Company Number: US-BAYER-2013-020981

PATIENT
  Age: 23 Year
  Sex: Female
  Weight: 101.59 kg

DRUGS (3)
  1. OCELLA [Suspect]
  2. YAZ [Suspect]
     Dosage: UNK
     Dates: start: 20090902, end: 20100222
  3. YASMIN [Suspect]

REACTIONS (2)
  - Pulmonary embolism [Recovered/Resolved]
  - Pulmonary infarction [None]
